FAERS Safety Report 8337934-1 (Version None)
Quarter: 2012Q2

REPORT INFORMATION
  Report Type: 
  Country: None (occurrence: None)
  Receive Date: 20120504
  Receipt Date: 20120425
  Transmission Date: 20120825
  Serious: Yes (Other)
  Sender: FDA-Public Use
  Company Number: US-JNJFOC-20120411946

PATIENT
  Sex: Female
  Weight: 72.58 kg

DRUGS (2)
  1. FENTANYL-100 [Suspect]
     Indication: SPINAL FUSION SURGERY
     Route: 062
     Dates: start: 20090101, end: 20090801
  2. FENTANYL-100 [Suspect]
     Indication: EXOSTOSIS
     Route: 062
     Dates: start: 20090101, end: 20090801

REACTIONS (3)
  - JOINT LOCK [None]
  - OVERDOSE [None]
  - MUSCLE TIGHTNESS [None]
